FAERS Safety Report 12674224 (Version 1)
Quarter: 2016Q3

REPORT INFORMATION
  Report Type: Report from Study
  Country: BR (occurrence: BR)
  Receive Date: 20160822
  Receipt Date: 20160822
  Transmission Date: 20161109
  Serious: Yes (Other)
  Sender: FDA-Public Use
  Company Number: BR-ABBVIE-16K-020-1703148-00

PATIENT
  Age: 60 Year
  Sex: Female
  Weight: 75 kg

DRUGS (4)
  1. HUMIRA [Suspect]
     Active Substance: ADALIMUMAB
     Route: 058
     Dates: start: 20160623, end: 201607
  2. HUMIRA [Suspect]
     Active Substance: ADALIMUMAB
     Indication: RHEUMATOID ARTHRITIS
     Route: 058
     Dates: start: 2010
  3. REFRESH [Concomitant]
     Active Substance: UNSPECIFIED INGREDIENT
     Indication: DRY EYE
     Dosage: UNSPECIFIED
     Route: 061
     Dates: start: 1998
  4. ARAVA [Concomitant]
     Active Substance: LEFLUNOMIDE
     Indication: ARTHRITIS
     Route: 048
     Dates: start: 20160808

REACTIONS (11)
  - Conjunctivitis [Recovering/Resolving]
  - Blood cholesterol abnormal [Unknown]
  - Conjunctivitis [Recovering/Resolving]
  - Dry eye [Unknown]
  - Eye swelling [Unknown]
  - Visual impairment [Recovered/Resolved]
  - Alopecia [Unknown]
  - Dry skin [Unknown]
  - Corneal disorder [Recovered/Resolved]
  - Eye pain [Recovered/Resolved]
  - Hair texture abnormal [Unknown]

NARRATIVE: CASE EVENT DATE: 20160624
